FAERS Safety Report 7762520-1 (Version None)
Quarter: 2011Q3

REPORT INFORMATION
  Report Type: 
  Country: None (occurrence: None)
  Receive Date: 20110920
  Receipt Date: 20110817
  Transmission Date: 20111222
  Serious: No
  Sender: FDA-Public Use
  Company Number: US-MYLANLABS-2011S1017284

PATIENT
  Age: 68 Year
  Sex: Female
  Weight: 78.02 kg

DRUGS (4)
  1. SIMVASTATIN [Concomitant]
     Indication: BLOOD CHOLESTEROL INCREASED
  2. ARIMIDEX [Suspect]
     Indication: BREAST CANCER
     Route: 048
     Dates: start: 20080501, end: 20100101
  3. ATENOLOL [Concomitant]
     Indication: BLOOD PRESSURE INCREASED
  4. ANASTROZOLE [Suspect]
     Indication: BREAST CANCER
     Route: 048
     Dates: start: 20100101

REACTIONS (1)
  - ALOPECIA [None]
